FAERS Safety Report 4682520-8 (Version None)
Quarter: 2005Q2

REPORT INFORMATION
  Report Type: 
  Country: None (occurrence: None)
  Receive Date: 20050602
  Receipt Date: 20050602
  Transmission Date: 20051028
  Serious: Yes (Disabling, Other)
  Sender: FDA-Public Use
  Company Number: None

PATIENT
  Age: 75 Year
  Sex: Female
  Weight: 48.5349 kg

DRUGS (2)
  1. AMIODARONE [Suspect]
     Indication: ATRIAL FIBRILLATION
     Dosage: DAILY
     Dates: start: 20020801, end: 20030723
  2. AMIODARONE [Suspect]
     Indication: ATRIAL FLUTTER
     Dosage: DAILY
     Dates: start: 20020801, end: 20030723

REACTIONS (3)
  - DIFFICULTY IN WALKING [None]
  - DYSKINESIA [None]
  - MUSCULAR WEAKNESS [None]
